FAERS Safety Report 6410908-3 (Version None)
Quarter: 2009Q4

REPORT INFORMATION
  Report Type: 
  Country: None (occurrence: None)
  Receive Date: 20091022
  Receipt Date: 20091014
  Transmission Date: 20100525
  Serious: Yes (Hospitalization, Other)
  Sender: FDA-Public Use
  Company Number: US-BAXTER-2009BH015978

PATIENT
  Sex: Female

DRUGS (1)
  1. DIANEAL [Suspect]
     Indication: PERITONEAL DIALYSIS
     Route: 033

REACTIONS (8)
  - AUTOIMMUNE DISORDER [None]
  - BLOOD GLUCOSE FLUCTUATION [None]
  - BLOOD PRESSURE DECREASED [None]
  - CYTOMEGALOVIRUS INFECTION [None]
  - DEHYDRATION [None]
  - DIARRHOEA [None]
  - GASTRIC ULCER [None]
  - OESOPHAGEAL ULCER [None]
